FAERS Safety Report 9422435 (Version 1)
Quarter: 2013Q3

REPORT INFORMATION
  Report Type: Spontaneous
  Country: GB (occurrence: GB)
  Receive Date: 20130726
  Receipt Date: 20130726
  Transmission Date: 20140515
  Serious: Yes (Other)
  Sender: FDA-Public Use
  Company Number: GB-009507513-1307GBR010581

PATIENT
  Sex: Female

DRUGS (1)
  1. NEXPLANON [Suspect]
     Dosage: UNK
     Dates: start: 201209

REACTIONS (4)
  - Abortion [Recovered/Resolved]
  - Device expulsion [Unknown]
  - Unintended pregnancy [Recovered/Resolved]
  - Medical device complication [Unknown]
